FAERS Safety Report 21863213 (Version 1)
Quarter: 2023Q1

REPORT INFORMATION
  Report Type: Spontaneous
  Country: US (occurrence: US)
  Receive Date: 20230115
  Receipt Date: 20230115
  Transmission Date: 20230418
  Serious: Yes (Other)
  Sender: FDA-Public Use
  Company Number: US-BEH-2023154039

PATIENT
  Age: 42 Year
  Sex: Male

DRUGS (1)
  1. HIZENTRA [Suspect]
     Active Substance: HUMAN IMMUNOGLOBULIN G
     Indication: Hypogammaglobulinaemia
     Dosage: 16 GRAM, QW
     Route: 058
     Dates: start: 201904

REACTIONS (5)
  - Staphylococcal infection [Unknown]
  - Infusion site abscess [Unknown]
  - Ear infection [Unknown]
  - Respiratory tract infection [Unknown]
  - Dermatitis infected [Unknown]

NARRATIVE: CASE EVENT DATE: 20220801
